FAERS Safety Report 13754118 (Version 1)
Quarter: 2017Q3

REPORT INFORMATION
  Report Type: Spontaneous
  Country: FR (occurrence: FR)
  Receive Date: 20170714
  Receipt Date: 20170714
  Transmission Date: 20171127
  Serious: Yes (Hospitalization)
  Sender: FDA-Public Use
  Company Number: FR-009507513-1707FRA001787

PATIENT
  Age: 57 Year
  Sex: Male
  Weight: 55 kg

DRUGS (23)
  1. TRIFLUCAN [Suspect]
     Active Substance: FLUCONAZOLE
     Indication: CHEMOTHERAPY
     Dosage: 1 DF, QD
     Route: 042
     Dates: start: 20170614, end: 20170617
  2. TENORMIN [Suspect]
     Active Substance: ATENOLOL
     Indication: PRODUCT USED FOR UNKNOWN INDICATION
     Dosage: 0.25 MG, QD
     Route: 048
     Dates: start: 20170620
  3. PIPERACILLIN AND TAZOBACTAM [Suspect]
     Active Substance: PIPERACILLIN SODIUM\TAZOBACTAM SODIUM
     Indication: ANTIBIOTIC THERAPY
     Dosage: 4 G, QD
     Route: 042
     Dates: start: 20170612, end: 20170614
  4. FORTUM [Suspect]
     Active Substance: CEFTAZIDIME
     Indication: ANTIBIOTIC THERAPY
     Dosage: 6 G, QD
     Route: 042
     Dates: start: 20170614, end: 20170619
  5. ZYVOXID [Suspect]
     Active Substance: LINEZOLID
     Indication: ANTIBIOTIC THERAPY
     Dosage: 1200 MG, DQ
     Route: 042
     Dates: start: 20170619, end: 20170620
  6. TOPALGIC (TRAMADOL HYDROCHLORIDE) [Suspect]
     Active Substance: TRAMADOL HYDROCHLORIDE
     Indication: ANALGESIC THERAPY
     Dosage: 200-400MG, QD
     Route: 042
     Dates: start: 20170611, end: 20170620
  7. ARACYTINE [Suspect]
     Active Substance: CYTARABINE
     Indication: ACUTE MYELOID LEUKAEMIA
     Dosage: 340 MG, QD
     Route: 042
     Dates: start: 20170608, end: 20170614
  8. PARACETAMOL BRAUN [Suspect]
     Active Substance: ACETAMINOPHEN
     Indication: ANALGESIC THERAPY
     Dosage: 2 G, QD
     Route: 042
     Dates: start: 20170617, end: 20170618
  9. SEDORRHOIDE /00967801/ [Suspect]
     Active Substance: BENZOCAINE\BUTAMBEN\DODECLONIUM\ENOXOLONE\ESCULIN
     Indication: HAEMORRHOIDS
     Dosage: 2 DF, QD
     Route: 054
     Dates: start: 20170613, end: 20170619
  10. ZOVIRAX [Suspect]
     Active Substance: ACYCLOVIR
     Indication: ANTIVIRAL TREATMENT
     Dosage: 250-500 MG, QD
     Route: 042
     Dates: start: 20170613, end: 20170621
  11. VIALEBEX [Suspect]
     Active Substance: ALBUMIN HUMAN
     Indication: OEDEMA
     Dosage: 1 DF, QD
     Route: 042
     Dates: start: 20170619
  12. CANCIDAS [Suspect]
     Active Substance: CASPOFUNGIN ACETATE
     Indication: FUNGAL INFECTION
     Dosage: 50 MG ONCE A DAY
     Route: 042
     Dates: start: 20170618, end: 20170620
  13. LASILIX [Suspect]
     Active Substance: FUROSEMIDE
     Indication: ACUTE PULMONARY OEDEMA
     Dosage: 40-120 MG, QD
     Route: 042
     Dates: start: 20170616, end: 20170620
  14. XANAX [Suspect]
     Active Substance: ALPRAZOLAM
     Indication: ANXIETY
     Dosage: .25 MG (1 DF), QD
     Route: 048
  15. PHYTONADIONE. [Suspect]
     Active Substance: PHYTONADIONE
     Indication: ELECTROLYTE IMBALANCE
     Dosage: 1 DF, QD
     Route: 048
     Dates: start: 20170607, end: 20170619
  16. VANCOMYCINE SANDOZ [Suspect]
     Active Substance: VANCOMYCIN
     Indication: ANTIBIOTIC THERAPY
     Dosage: 2.4-4G
     Route: 042
     Dates: start: 20170610, end: 20170619
  17. IDARUBICIN HYDROCHLORIDE. [Suspect]
     Active Substance: IDARUBICIN HYDROCHLORIDE
     Indication: ACUTE MYELOID LEUKAEMIA
     Dosage: UNK
     Dates: start: 20170608, end: 20170614
  18. CYCLO 3 FORT [Suspect]
     Active Substance: ASCORBIC ACID\HESPERIDIN METHYLCHALCONE\RUSCUS ACULEATUS ROOT
     Indication: HAEMORRHOIDS
     Dosage: 3 DF, QD
     Route: 048
     Dates: start: 20170608, end: 20170618
  19. PRIMPERAN [Suspect]
     Active Substance: METOCLOPRAMIDE HYDROCHLORIDE
     Indication: NAUSEA
     Dosage: 10 MG (1 DF), QD
     Dates: start: 20170613, end: 20170621
  20. IMIPENEM AND CILASTATIN [Suspect]
     Active Substance: CILASTATIN SODIUM\IMIPENEM
     Indication: ANTIBIOTIC THERAPY
     Dosage: 1000 MG ONCE A DAY
     Route: 042
     Dates: start: 20170619, end: 20170620
  21. CANCIDAS [Suspect]
     Active Substance: CASPOFUNGIN ACETATE
     Indication: ANTIFUNGAL TREATMENT
  22. OROZAMUDOL [Suspect]
     Active Substance: TRAMADOL
     Indication: ANALGESIC THERAPY
     Dosage: 100 MG (2 DF), QD
     Route: 048
     Dates: start: 20170611, end: 20170620
  23. ALDACTONE [Suspect]
     Active Substance: SPIRONOLACTONE
     Indication: OEDEMA
     Dosage: 75 MG, (1 DF) QD
     Route: 048
     Dates: start: 20170619

REACTIONS (3)
  - Extrapyramidal disorder [Recovering/Resolving]
  - Hyperbilirubinaemia [Not Recovered/Not Resolved]
  - Atrial fibrillation [Recovering/Resolving]

NARRATIVE: CASE EVENT DATE: 20170619
